FAERS Safety Report 13796239 (Version 1)
Quarter: 2017Q3

REPORT INFORMATION
  Report Type: Spontaneous
  Country: FR (occurrence: FR)
  Receive Date: 20170726
  Receipt Date: 20170726
  Transmission Date: 20171127
  Serious: Yes (Other)
  Sender: FDA-Public Use
  Company Number: FR-MERCK KGAA-2023820

PATIENT

DRUGS (1)
  1. NOVOTHYROX [Suspect]
     Active Substance: LEVOTHYROXINE SODIUM
     Indication: POST PROCEDURAL HYPOTHYROIDISM

REACTIONS (5)
  - Vertigo [Recovered/Resolved]
  - Headache [Recovered/Resolved]
  - Angina pectoris [Recovered/Resolved]
  - Palpitations [Recovered/Resolved]
  - Gastrointestinal disorder [Recovered/Resolved]
